FAERS Safety Report 8578226-5 (Version None)
Quarter: 2012Q3

REPORT INFORMATION
  Report Type: 
  Country: None (occurrence: None)
  Receive Date: 20120808
  Receipt Date: 20120731
  Transmission Date: 20120928
  Serious: No
  Sender: FDA-Public Use
  Company Number: US-B.I. PHARMACEUTICALS,INC./RIDGEFIELD-2012-BP-17238BP

PATIENT
  Age: 85 Year
  Sex: Female

DRUGS (6)
  1. MEDICATION NOT FURTHER SPECIFIED [Concomitant]
     Indication: GLAUCOMA
  2. ZANTAC 150 [Suspect]
     Dosage: 300 MG
     Route: 048
     Dates: start: 20111101, end: 20120401
  3. MEDICATION NOT FURTHER SPECIFIED [Concomitant]
     Indication: DEPRESSION
  4. ZANTAC 150 [Suspect]
     Indication: ABDOMINAL PAIN UPPER
     Dosage: 150 MG
     Route: 048
     Dates: start: 20120401
  5. ASPIRIN [Concomitant]
     Indication: PROPHYLAXIS
     Dosage: 81 MG
     Route: 048
  6. CHLORDIAZEPOXIDE HCL W/ CLIDINIUM BROMIDE [Concomitant]
     Indication: GASTROINTESTINAL PAIN
     Route: 048

REACTIONS (2)
  - INTENTIONAL DRUG MISUSE [None]
  - CONDITION AGGRAVATED [None]
